FAERS Safety Report 15741318 (Version 2)
Quarter: 2019Q1

REPORT INFORMATION
  Report Type: Report from Study
  Country: IT (occurrence: IT)
  Receive Date: 20181219
  Receipt Date: 20190109
  Transmission Date: 20190417
  Serious: Yes (Death, Other)
  Sender: FDA-Public Use
  Company Number: IT-BRISTOL-MYERS SQUIBB COMPANY-BMS-2018-117459

PATIENT
  Age: 59 Year
  Sex: Male
  Weight: 81 kg

DRUGS (3)
  1. APIXABAN [Suspect]
     Active Substance: APIXABAN
     Indication: PULMONARY EMBOLISM
     Dosage: 10 MG, QD
     Route: 048
     Dates: start: 20180906
  2. OSIMERTINIB. [Concomitant]
     Active Substance: OSIMERTINIB
     Indication: NEOPLASM MALIGNANT
     Dosage: 80 MG, DAILY
     Route: 048
     Dates: start: 20180809
  3. DEXAMETHASONE. [Concomitant]
     Active Substance: DEXAMETHASONE
     Indication: PRODUCT USED FOR UNKNOWN INDICATION
     Dosage: 4 MG, DAILY
     Route: 048

REACTIONS (2)
  - Malignant neoplasm progression [Fatal]
  - Respiratory failure [Fatal]

NARRATIVE: CASE EVENT DATE: 20181008
